FAERS Safety Report 17385866 (Version 2)
Quarter: 2021Q1

REPORT INFORMATION
  Report Type: Spontaneous
  Country: US (occurrence: US)
  Receive Date: 20200206
  Receipt Date: 20210201
  Transmission Date: 20210419
  Serious: No
  Sender: FDA-Public Use
  Company Number: US-ABBVIE-19K-163-2929114-00

PATIENT
  Age: 55 Year
  Sex: Male
  Weight: 81.72 kg

DRUGS (6)
  1. HUMIRA [Suspect]
     Active Substance: ADALIMUMAB
     Indication: CROHN^S DISEASE
     Route: 058
     Dates: start: 201805, end: 2019
  2. IRBESARTAN. [Concomitant]
     Active Substance: IRBESARTAN
     Indication: BLOOD PRESSURE MEASUREMENT
  3. NEXIUM [Concomitant]
     Active Substance: ESOMEPRAZOLE MAGNESIUM
     Indication: GASTROOESOPHAGEAL REFLUX DISEASE
  4. HUMIRA [Suspect]
     Active Substance: ADALIMUMAB
     Route: 058
     Dates: start: 20190914
  5. COLESTIPOL [Concomitant]
     Active Substance: COLESTIPOL
     Indication: DIARRHOEA
  6. ALLOPURINOL. [Concomitant]
     Active Substance: ALLOPURINOL
     Indication: GOUT

REACTIONS (7)
  - Injection site haemorrhage [Unknown]
  - Abdominal pain upper [Unknown]
  - Incorrect dose administered [Unknown]
  - Diarrhoea [Unknown]
  - Wrong technique in product usage process [Unknown]
  - Injection site pain [Unknown]
  - Injection site reaction [Unknown]

NARRATIVE: CASE EVENT DATE: 20190914
